FAERS Safety Report 5940108-2 (Version None)
Quarter: 2008Q4

REPORT INFORMATION
  Report Type: 
  Country: None (occurrence: None)
  Receive Date: 20081104
  Receipt Date: 20080122
  Transmission Date: 20090506
  Serious: No
  Sender: FDA-Public Use
  Company Number: US-BAYER-200714268BCC

PATIENT
  Age: 83 Year
  Sex: Male
  Weight: 77 kg

DRUGS (8)
  1. ALEVE (CAPLET) [Suspect]
     Indication: NECK PAIN
     Route: 048
     Dates: start: 20071201, end: 20071213
  2. BAYER EXTRA STRENGTH BACK AND BODY [Suspect]
     Indication: ARTHROPATHY
     Route: 048
     Dates: start: 20080101
  3. METOPROLOL TARTRATE [Concomitant]
  4. DOXAZOSIN MESYLATE [Concomitant]
  5. HYDROCHLORIDE [Concomitant]
  6. AVODART [Concomitant]
  7. FINASTERIDE [Concomitant]
  8. DARVOCET [Concomitant]
     Indication: BACK PAIN

REACTIONS (3)
  - CONSTIPATION [None]
  - CONTUSION [None]
  - DYSURIA [None]
